FAERS Safety Report 12175063 (Version 1)
Quarter: 2016Q1

REPORT INFORMATION
  Report Type: Spontaneous
  Country: JP (occurrence: JP)
  Receive Date: 20160314
  Receipt Date: 20160314
  Transmission Date: 20160526
  Serious: Yes (Hospitalization, Other)
  Sender: FDA-Public Use
  Company Number: JP-MYLANLABS-2016M1010465

PATIENT

DRUGS (7)
  1. FENTANYL. [Suspect]
     Active Substance: FENTANYL
     Indication: GENERAL ANAESTHESIA
     Dosage: 250 MICROG IN TOTAL
     Route: 042
  2. FENTANYL. [Suspect]
     Active Substance: FENTANYL
     Dosage: THEN CONTINUOUS INFUSION AT A RATE OF 35 MICROG/HR
     Route: 065
  3. ROCURONIUM BROMIDE. [Concomitant]
     Active Substance: ROCURONIUM BROMIDE
     Indication: MUSCLE RELAXANT THERAPY
     Dosage: 50MG
     Route: 065
  4. PROPOFOL. [Suspect]
     Active Substance: PROPOFOL
     Indication: GENERAL ANAESTHESIA
     Dosage: TARGET-CONTROLLED INFUSIONS AT A RATE OF 2-5 MICROG/ML
     Route: 042
  5. REMIFENTANIL [Concomitant]
     Active Substance: REMIFENTANIL
     Indication: PRODUCT USED FOR UNKNOWN INDICATION
     Dosage: TARGET-CONTROLLED INFUSIONS AT A RATE OF 0.1-0.4 MICROG/KG/MIN
     Route: 065
  6. SUGAMMADEX [Concomitant]
     Active Substance: SUGAMMADEX
     Indication: PRODUCT USED FOR UNKNOWN INDICATION
     Route: 065
  7. FLURBIPROFEN AXETIL [Concomitant]
     Active Substance: FLURBIPROFEN AXETIL
     Indication: PRODUCT USED FOR UNKNOWN INDICATION
     Dosage: 50MG
     Route: 065

REACTIONS (1)
  - Vocal cord paralysis [Not Recovered/Not Resolved]
